FAERS Safety Report 6268920-3 (Version None)
Quarter: 2009Q3

REPORT INFORMATION
  Report Type: 
  Country: None (occurrence: None)
  Receive Date: 20090715
  Receipt Date: 20090709
  Transmission Date: 20100115
  Serious: Yes (Other)
  Sender: FDA-Public Use
  Company Number: US-ELI_LILLY_AND_COMPANY-US200907002409

PATIENT
  Sex: Female

DRUGS (2)
  1. HUMALOG [Suspect]
     Dosage: 80 U, UNK
  2. HUMALOG MIX 75/25 [Suspect]
     Dosage: 80 U, UNK

REACTIONS (2)
  - BLOOD GLUCOSE DECREASED [None]
  - WRONG DRUG ADMINISTERED [None]
